FAERS Safety Report 23272695 (Version 2)
Quarter: 2023Q4

REPORT INFORMATION
  Report Type: Report from Study
  Country: US (occurrence: US)
  Receive Date: 20231207
  Receipt Date: 20231220
  Transmission Date: 20240110
  Serious: Yes (Other)
  Sender: FDA-Public Use
  Company Number: US-ALNYLAM PHARMACEUTICALS, INC.-ALN-2023-006117

PATIENT

DRUGS (22)
  1. ONPATTRO [Suspect]
     Active Substance: PATISIRAN SODIUM
     Indication: Cardiac amyloidosis
     Dosage: 28.59 MILLIGRAM, Q3W
     Route: 042
     Dates: start: 20230324
  2. ONPATTRO [Suspect]
     Active Substance: PATISIRAN SODIUM
     Dosage: UNK UNK, Q3W
     Route: 042
     Dates: start: 20230415, end: 20230621
  3. ONPATTRO [Suspect]
     Active Substance: PATISIRAN SODIUM
     Dosage: 29.64 MILLIGRAM, Q3W
     Route: 042
     Dates: start: 20230929
  4. ONPATTRO [Suspect]
     Active Substance: PATISIRAN SODIUM
     Dosage: 27.9 MILLIGRAM, Q3W
     Route: 042
     Dates: start: 20231110
  5. FAMOTIDINE [Concomitant]
     Active Substance: FAMOTIDINE
     Indication: Gastrointestinal haemorrhage
     Dosage: 20 MILLIGRAM, PRN
     Route: 048
     Dates: start: 20230112
  6. FERROUS SULFATE [Concomitant]
     Active Substance: FERROUS SULFATE
     Indication: Supplementation therapy
     Dosage: 325 MILLIGRAM, QD
     Route: 048
     Dates: start: 20230131
  7. Green tea leaf extract [Concomitant]
     Indication: Supplementation therapy
     Dosage: 500 MILLIGRAM, QD
     Route: 048
     Dates: start: 20230131
  8. LEVOTHYROXINE [Concomitant]
     Active Substance: LEVOTHYROXINE
     Indication: Hypothyroidism
     Dosage: 75 MICROGRAM, QD
     Route: 048
     Dates: start: 20230112
  9. MAGNESIUM OXIDE [Concomitant]
     Active Substance: MAGNESIUM OXIDE
     Indication: Supplementation therapy
     Dosage: 400 MILLIGRAM, BID
     Route: 048
     Dates: start: 20230112
  10. METOPROLOL SUCCINATE [Concomitant]
     Active Substance: METOPROLOL SUCCINATE
     Indication: Chronic left ventricular failure
     Dosage: 50 MILLIGRAM, QD
     Route: 048
     Dates: start: 20230503, end: 20230925
  11. METOPROLOL SUCCINATE [Concomitant]
     Active Substance: METOPROLOL SUCCINATE
     Dosage: 25 MILLIGRAM, QD
     Route: 048
     Dates: start: 20231018
  12. VITAMINS [Concomitant]
     Active Substance: VITAMINS
     Indication: Supplementation therapy
     Dosage: 1 DOSAGE FORM (TABLET), QD
     Route: 048
     Dates: start: 20230131
  13. NITROGLYCERIN [Concomitant]
     Active Substance: NITROGLYCERIN
     Indication: Angina pectoris
     Dosage: 0.4 MILLIGRAM, EVERY 5 MIN PRN
     Route: 060
     Dates: start: 20230523
  14. ROSUVASTATIN [Concomitant]
     Active Substance: ROSUVASTATIN
     Indication: Hyperlipidaemia
     Dosage: 20 MILLIGRAM, QD
     Route: 048
     Dates: start: 20211208
  15. SPIRONOLACTONE [Concomitant]
     Active Substance: SPIRONOLACTONE
     Indication: Chronic left ventricular failure
     Dosage: 50 MILLIGRAM, QD
     Route: 048
     Dates: start: 20230308
  16. TAFAMIDIS [Concomitant]
     Active Substance: TAFAMIDIS
     Indication: Amyloidosis
     Dosage: 61 MILLIGRAM, QD
     Route: 048
     Dates: start: 20230120
  17. TEMAZEPAM [Concomitant]
     Active Substance: TEMAZEPAM
     Indication: Insomnia
     Dosage: 30 MILLIGRAM, NIGHTLY PRN FOR SLEEP
     Route: 048
     Dates: start: 20230112
  18. TORSEMIDE [Concomitant]
     Active Substance: TORSEMIDE
     Indication: Chronic left ventricular failure
     Dosage: 60 MILLIGRAM, QD
     Route: 048
     Dates: start: 20230308, end: 20231019
  19. TORSEMIDE [Concomitant]
     Active Substance: TORSEMIDE
     Dosage: 40 MILLIGRAM, BID
     Route: 048
     Dates: start: 20231019
  20. VITAMIN A [Concomitant]
     Active Substance: VITAMIN A
     Indication: Supplementation therapy
     Dosage: 8000 UNITS, QD
     Route: 048
     Dates: start: 20230131
  21. POTASSIUM CHLORIDE [Concomitant]
     Active Substance: POTASSIUM CHLORIDE
     Indication: Supplementation therapy
     Dosage: 40 MILLIEQUIVALENT, QD
     Route: 048
     Dates: start: 20231002
  22. LIDOCAINE [Concomitant]
     Active Substance: LIDOCAINE
     Indication: Anaesthesia
     Dosage: UNK
     Route: 065
     Dates: start: 20231018

REACTIONS (2)
  - Atrial fibrillation [Recovered/Resolved]
  - Cardiac pacemaker insertion [Recovered/Resolved]

NARRATIVE: CASE EVENT DATE: 20230111
